FAERS Safety Report 5244401-0 (Version None)
Quarter: 2007Q1

REPORT INFORMATION
  Report Type: 
  Country: None (occurrence: None)
  Receive Date: 20070222
  Receipt Date: 20070213
  Transmission Date: 20070707
  Serious: Yes (Hospitalization)
  Sender: FDA-Public Use
  Company Number: 2005UW10097

PATIENT
  Age: 69 Year
  Sex: Male
  Weight: 81.8 kg

DRUGS (7)
  1. SEROQUEL [Suspect]
     Indication: BIPOLAR I DISORDER
     Route: 048
     Dates: start: 20040706
  2. SEROQUEL [Suspect]
     Indication: INSOMNIA
     Route: 048
     Dates: start: 20040706
  3. SEROQUEL [Suspect]
     Dosage: 100-200
     Route: 048
     Dates: end: 20060530
  4. SEROQUEL [Suspect]
     Dosage: 100-200
     Route: 048
     Dates: end: 20060530
  5. VALIUM [Concomitant]
     Route: 048
  6. STELAZINE [Concomitant]
     Route: 048
  7. ASPIRIN [Concomitant]

REACTIONS (15)
  - AGITATION [None]
  - AMNESIA [None]
  - ANAPHYLACTIC SHOCK [None]
  - BLINDNESS [None]
  - BLOOD COUNT ABNORMAL [None]
  - BLOOD POTASSIUM DECREASED [None]
  - DEAFNESS [None]
  - DIZZINESS [None]
  - DRUG ADMINISTRATION ERROR [None]
  - DRY MOUTH [None]
  - FATIGUE [None]
  - FEELING DRUNK [None]
  - HEART RATE DECREASED [None]
  - ORTHOSTATIC HYPOTENSION [None]
  - SEDATION [None]
